FAERS Safety Report 8073581-7 (Version None)
Quarter: 2012Q1

REPORT INFORMATION
  Report Type: 
  Country: None (occurrence: None)
  Receive Date: 20120126
  Receipt Date: 20120119
  Transmission Date: 20120608
  Serious: Yes (Life-Threatening, Hospitalization)
  Sender: FDA-Public Use
  Company Number: US-BAYER-2011-078014

PATIENT
  Age: 33 Year
  Sex: Female
  Weight: 143 kg

DRUGS (3)
  1. YAZ [Suspect]
     Indication: MENSTRUATION IRREGULAR
     Dosage: UNK
     Dates: start: 20090801, end: 20091007
  2. ADVAIR DISKUS 100/50 [Concomitant]
     Indication: ASTHMA
     Dosage: 100-50 MCG, PRN
  3. PROVENTIL-HFA [Concomitant]
     Indication: ASTHMA
     Dosage: UNK UNK, PRN

REACTIONS (7)
  - THROMBOSIS [None]
  - INJURY [None]
  - PULMONARY EMBOLISM [None]
  - DEEP VEIN THROMBOSIS [None]
  - ANHEDONIA [None]
  - ANXIETY [None]
  - PAIN [None]
